FAERS Safety Report 12526542 (Version 2)
Quarter: 2016Q3

REPORT INFORMATION
  Report Type: Report from Study
  Country: BR (occurrence: BR)
  Receive Date: 20160705
  Receipt Date: 20160809
  Transmission Date: 20161109
  Serious: Yes (Other)
  Sender: FDA-Public Use
  Company Number: PHHY2016BR091822

PATIENT
  Sex: Female
  Weight: 60 kg

DRUGS (2)
  1. EXJADE [Suspect]
     Active Substance: DEFERASIROX
     Dosage: 35 MG/KG, QD (4 DF OF 500 MG)
     Route: 048
     Dates: start: 2014
  2. EXJADE [Suspect]
     Active Substance: DEFERASIROX
     Indication: THALASSAEMIA
     Dosage: 35 MG/KG, QD (4 DF OF 500 MG)
     Route: 048
     Dates: end: 2013

REACTIONS (2)
  - Maternal exposure during pregnancy [Unknown]
  - Benign ovarian tumour [Recovered/Resolved]

NARRATIVE: CASE EVENT DATE: 2013
